FAERS Safety Report 5059699-1 (Version None)
Quarter: 2006Q3

REPORT INFORMATION
  Report Type: 
  Country: None (occurrence: None)
  Receive Date: 20060718
  Receipt Date: 20060630
  Transmission Date: 20061208
  Serious: No
  Sender: FDA-Public Use
  Company Number: DE200606005441

PATIENT
  Age: 37 Year
  Sex: Male

DRUGS (1)
  1. CYMBALTA [Suspect]
     Indication: DEPRESSION
     Dosage: 60 MG DAILY (1/D) ORAL
     Route: 048
     Dates: start: 20051001

REACTIONS (3)
  - DEPRESSION [None]
  - DISEASE PROGRESSION [None]
  - RESTLESS LEGS SYNDROME [None]
